FAERS Safety Report 8028580-8 (Version None)
Quarter: 2012Q1

REPORT INFORMATION
  Report Type: 
  Country: None (occurrence: None)
  Receive Date: 20120106
  Receipt Date: 20111228
  Transmission Date: 20120608
  Serious: Yes (Other)
  Sender: FDA-Public Use
  Company Number: DE-US-EMD SERONO, INC.-7102896

PATIENT
  Sex: Female
  Weight: 58 kg

DRUGS (2)
  1. REBIF [Suspect]
     Indication: RELAPSING-REMITTING MULTIPLE SCLEROSIS
     Route: 058
     Dates: start: 20100920, end: 20101210
  2. ACETAMINOPHEN [Concomitant]
     Route: 048
     Dates: start: 20100920, end: 20101210

REACTIONS (4)
  - MYALGIA [None]
  - INJECTION SITE INFLAMMATION [None]
  - NECROSIS [None]
  - LIVER FUNCTION TEST ABNORMAL [None]
